FAERS Safety Report 24223312 (Version 1)
Quarter: 2024Q3

REPORT INFORMATION
  Report Type: Spontaneous
  Country: US (occurrence: US)
  Receive Date: 20240819
  Receipt Date: 20240819
  Transmission Date: 20241016
  Serious: No
  Sender: ANI
  Company Number: US-ANIPHARMA-2024-US-034310

PATIENT
  Sex: Female

DRUGS (3)
  1. ANASTROZOLE [Suspect]
     Active Substance: ANASTROZOLE
     Indication: Product used for unknown indication
     Dosage: 1 TABLET DAILY IN THE EVENING
     Route: 048
     Dates: end: 202404
  2. IBRANCE [Suspect]
     Active Substance: PALBOCICLIB
     Dosage: 75 MG FOR 21 DAYS AND THEN 7 DAYS OFF
     Route: 048
     Dates: start: 202211
  3. FASLODEX [Suspect]
     Active Substance: FULVESTRANT
     Dosage: FOR THREE WEEKS, GET TWO INJECTIONS IN THE BUTT AND THEN WHEN LEVELED OFF GETS ONE INJECTION EVERY M

REACTIONS (5)
  - Rash papular [Recovered/Resolved]
  - Rash pruritic [Not Recovered/Not Resolved]
  - Scab [Not Recovered/Not Resolved]
  - Rash [Not Recovered/Not Resolved]
  - Skin lesion [Not Recovered/Not Resolved]

NARRATIVE: CASE EVENT DATE: 20230101
